FAERS Safety Report 11938871 (Version 3)
Quarter: 2016Q1

REPORT INFORMATION
  Report Type: Spontaneous
  Country: US (occurrence: US)
  Receive Date: 20160122
  Receipt Date: 20160217
  Transmission Date: 20160526
  Serious: Yes (Hospitalization, Other)
  Sender: FDA-Public Use
  Company Number: US-GLAXOSMITHKLINE-US2016007004

PATIENT
  Age: 53 Year
  Sex: Female

DRUGS (16)
  1. ASPIRIN. [Suspect]
     Active Substance: ASPIRIN
     Indication: CARDIAC DISORDER
  2. AMLODIPINE [Concomitant]
     Active Substance: AMLODIPINE BESYLATE
  3. DICYCLOMINE [Concomitant]
     Active Substance: DICYCLOMINE HYDROCHLORIDE
  4. ZOFRAN [Concomitant]
     Active Substance: ONDANSETRON HYDROCHLORIDE
  5. ALIGN [Concomitant]
     Active Substance: BIFIDOBACTERIUM LONGUM SUBSP. INFANTIS
  6. ALPRAZOLAM. [Concomitant]
     Active Substance: ALPRAZOLAM
  7. ASPIRIN. [Concomitant]
     Active Substance: ASPIRIN
  8. CALCIUM [Concomitant]
     Active Substance: CALCIUM
  9. ZYRTEC [Concomitant]
     Active Substance: CETIRIZINE HYDROCHLORIDE
  10. ADVAIR DISKUS [Suspect]
     Active Substance: FLUTICASONE PROPIONATE\SALMETEROL XINAFOATE
     Indication: ASTHMA
     Dosage: 250/50 UG
     Route: 055
  11. PERCOCET [Concomitant]
     Active Substance: ACETAMINOPHEN\OXYCODONE HYDROCHLORIDE
  12. ZOLPIDEM TARTRATE. [Concomitant]
     Active Substance: ZOLPIDEM TARTRATE
  13. ATROVENT [Concomitant]
     Active Substance: IPRATROPIUM BROMIDE
  14. BACLOFEN. [Concomitant]
     Active Substance: BACLOFEN
  15. GABAPENTIN. [Concomitant]
     Active Substance: GABAPENTIN
  16. OMEPRAZOLE. [Concomitant]
     Active Substance: OMEPRAZOLE

REACTIONS (17)
  - Pneumonia [Recovered/Resolved]
  - Pyrexia [Recovered/Resolved]
  - Drug ineffective [Unknown]
  - Hospitalisation [Recovered/Resolved]
  - Fall [Recovered/Resolved]
  - Gastric bypass [Recovered/Resolved]
  - Gallbladder operation [Recovered/Resolved]
  - Disorientation [Recovered/Resolved]
  - Rectal haemorrhage [Recovered/Resolved]
  - Spinal fusion surgery [Recovered/Resolved]
  - Asthma [Unknown]
  - Limb injury [Recovered/Resolved]
  - Cardiac disorder [Unknown]
  - Head injury [Recovered/Resolved]
  - Carpal tunnel decompression [Recovered/Resolved]
  - Liver disorder [Recovered/Resolved]
  - Liver operation [Recovered/Resolved]

NARRATIVE: CASE EVENT DATE: 20030813
